FAERS Safety Report 8265768-5 (Version None)
Quarter: 2012Q2

REPORT INFORMATION
  Report Type: 
  Country: None (occurrence: None)
  Receive Date: 20120406
  Receipt Date: 20111208
  Transmission Date: 20120825
  Serious: Yes (Other)
  Sender: FDA-Public Use
  Company Number: JP-ROCHE-750331

PATIENT
  Sex: Male

DRUGS (65)
  1. PREDNISOLONE [Concomitant]
     Route: 048
     Dates: start: 20090627, end: 20090630
  2. PREDNISOLONE [Concomitant]
     Route: 048
     Dates: start: 20090725, end: 20090728
  3. PREDNISOLONE [Concomitant]
     Route: 048
     Dates: start: 20091030, end: 20091102
  4. PREDNISOLONE [Concomitant]
     Route: 048
     Dates: start: 20100514, end: 20100517
  5. PREDNISOLONE [Concomitant]
     Route: 048
     Dates: start: 20100910, end: 20100913
  6. PREDNISOLONE [Concomitant]
     Route: 048
     Dates: start: 20100910, end: 20100913
  7. PURSENNID [Concomitant]
     Route: 048
     Dates: end: 20101205
  8. ACTEMRA [Suspect]
     Indication: CASTLEMAN'S DISEASE
     Route: 042
     Dates: start: 20081031, end: 20090306
  9. ESPO [Concomitant]
     Route: 058
     Dates: end: 20101020
  10. PREDNISOLONE [Concomitant]
     Route: 048
     Dates: start: 20091113, end: 20091116
  11. PREDNISOLONE [Concomitant]
     Route: 048
     Dates: start: 20100528, end: 20100531
  12. PREDNISOLONE [Concomitant]
     Route: 048
     Dates: start: 20100709, end: 20100712
  13. LANSOPRAZOLE [Concomitant]
     Route: 048
     Dates: start: 20101216
  14. PREDNISOLONE [Concomitant]
     Route: 048
     Dates: start: 20090530, end: 20090602
  15. PREDNISOLONE [Concomitant]
     Route: 048
     Dates: start: 20090613, end: 20090616
  16. PREDNISOLONE [Concomitant]
     Route: 048
     Dates: start: 20090808, end: 20090811
  17. PREDNISOLONE [Concomitant]
     Route: 048
     Dates: start: 20090822, end: 20090825
  18. PREDNISOLONE [Concomitant]
     Route: 048
     Dates: start: 20100115, end: 20100118
  19. ALLOPURINOL [Concomitant]
     Route: 048
  20. GOODMIN [Concomitant]
     Route: 048
     Dates: end: 20101215
  21. PROMACTA [Concomitant]
     Route: 048
     Dates: start: 20101215
  22. BENIDIPINE HYDROCHLORIDE [Concomitant]
     Route: 048
     Dates: end: 20101215
  23. BISOLVON [Concomitant]
     Route: 048
     Dates: start: 20101215
  24. MARZULENE-S [Concomitant]
     Route: 048
     Dates: start: 20101205
  25. ACTEMRA [Suspect]
     Route: 042
     Dates: start: 20100114, end: 20101202
  26. PREDNISOLONE [Concomitant]
     Route: 048
     Dates: start: 20100205, end: 20100208
  27. PREDNISOLONE [Concomitant]
     Route: 048
     Dates: start: 20100402, end: 20100405
  28. PREDNISOLONE [Concomitant]
     Route: 048
     Dates: start: 20100827, end: 20100830
  29. PERSANTIN [Concomitant]
     Route: 048
     Dates: end: 20101205
  30. LENDORMIN [Concomitant]
     Route: 048
     Dates: start: 20101216
  31. LOSARTAN POTASSIUM [Concomitant]
     Dates: end: 20101215
  32. NESPO [Concomitant]
     Route: 058
     Dates: start: 20101117, end: 20101117
  33. PREDNISOLONE [Concomitant]
     Route: 048
     Dates: start: 20090905, end: 20090908
  34. PREDNISOLONE [Concomitant]
     Route: 048
     Dates: start: 20091003, end: 20091006
  35. PREDNISOLONE [Concomitant]
     Route: 048
     Dates: start: 20100305, end: 20100308
  36. PREDNISOLONE [Concomitant]
     Route: 048
     Dates: start: 20100806, end: 20100809
  37. PRANLUKAST [Concomitant]
     Route: 048
     Dates: start: 20101215
  38. REBAMIPIDE [Concomitant]
     Route: 048
     Dates: end: 20101205
  39. MYONAL [Concomitant]
     Route: 048
  40. OLOPATADINE HCL [Concomitant]
     Route: 048
     Dates: start: 20101216
  41. PREDNISOLONE [Concomitant]
     Route: 048
     Dates: start: 20091017, end: 20091020
  42. PREDNISOLONE [Concomitant]
     Route: 048
     Dates: start: 20091127, end: 20091130
  43. PREDNISOLONE [Concomitant]
     Route: 048
     Dates: start: 20100319, end: 20100322
  44. PREDNISOLONE [Concomitant]
     Route: 048
     Dates: start: 20100414, end: 20100417
  45. PREDNISOLONE [Concomitant]
     Route: 048
     Dates: start: 20100429, end: 20100502
  46. PREDNISOLONE [Concomitant]
     Route: 048
     Dates: start: 20100924, end: 20100927
  47. PURSENNID [Concomitant]
     Route: 048
     Dates: start: 20101206
  48. SINGULAIR [Concomitant]
     Route: 048
     Dates: start: 20101216
  49. THEOLONG [Concomitant]
     Route: 048
  50. ACTEMRA [Suspect]
     Route: 042
     Dates: start: 20110107, end: 20110204
  51. TOLBUTAMIDE [Suspect]
     Indication: DIABETES MELLITUS
     Route: 048
  52. PREDNISOLONE [Concomitant]
     Route: 048
     Dates: start: 20090711, end: 20090714
  53. PREDNISOLONE [Concomitant]
     Route: 048
     Dates: start: 20100611, end: 20100614
  54. PREDNISOLONE [Concomitant]
     Route: 048
     Dates: start: 20100924, end: 20101007
  55. ALFAROL [Concomitant]
     Route: 048
     Dates: start: 20101020, end: 20101215
  56. OMEPRAZOLE [Concomitant]
     Dosage: DRUG: OMERAP
     Route: 048
     Dates: end: 20101215
  57. NEOMALLERMIN-TR [Concomitant]
     Route: 048
     Dates: end: 20101215
  58. KAYEXALATE [Concomitant]
     Route: 048
     Dates: end: 20101205
  59. ACTEMRA [Suspect]
     Route: 042
     Dates: start: 20090319, end: 20100104
  60. PREDNISOLONE [Concomitant]
     Route: 048
     Dates: start: 20090919, end: 20090922
  61. PREDNISOLONE [Concomitant]
     Route: 048
     Dates: start: 20091211, end: 20091214
  62. PREDNISOLONE [Concomitant]
     Route: 048
     Dates: start: 20100625, end: 20100628
  63. PREDNISOLONE [Concomitant]
     Route: 048
     Dates: start: 20100723, end: 20100726
  64. ADVAIR DISKUS 100/50 [Concomitant]
     Route: 055
  65. NESPO [Concomitant]
     Route: 058
     Dates: start: 20101121, end: 20101121

REACTIONS (10)
  - HYPERTENSION [None]
  - RENAL IMPAIRMENT [None]
  - DRUG SPECIFIC ANTIBODY PRESENT [None]
  - HYPOGLYCAEMIA [None]
  - HYPERKALAEMIA [None]
  - HYPERTRIGLYCERIDAEMIA [None]
  - NAUSEA [None]
  - BLOOD BILIRUBIN INCREASED [None]
  - AZOTAEMIA [None]
  - BLOOD URIC ACID INCREASED [None]
